FAERS Safety Report 7279927-1 (Version None)
Quarter: 2011Q1

REPORT INFORMATION
  Report Type: 
  Country: None (occurrence: None)
  Receive Date: 20110208
  Receipt Date: 20101222
  Transmission Date: 20110831
  Serious: Yes (Other)
  Sender: FDA-Public Use
  Company Number: US-BAYER-201022776NA

PATIENT
  Sex: Female

DRUGS (6)
  1. ENOXAPARIN SODIUM [Concomitant]
     Dosage: 100 MG, UNK
     Dates: start: 20091211
  2. MINOCYCLINE HCL [Concomitant]
  3. YAZ [Suspect]
     Indication: CONTRACEPTION
     Dates: start: 20030101
  4. ATIVAN [Concomitant]
  5. WARFARIN [Concomitant]
     Dosage: 5 MG, UNK
     Dates: start: 20091211
  6. WELLBUTRIN [Concomitant]

REACTIONS (7)
  - ARTHRALGIA [None]
  - DYSPNOEA [None]
  - OEDEMA PERIPHERAL [None]
  - POST THROMBOTIC SYNDROME [None]
  - PAIN IN EXTREMITY [None]
  - DEEP VEIN THROMBOSIS [None]
  - CHEST DISCOMFORT [None]
